FAERS Safety Report 10363186 (Version 1)
Quarter: 2014Q1

REPORT INFORMATION
  Report Type: Spontaneous
  Country: US (occurrence: None)
  Receive Date: 20140306
  Receipt Date: 20140306
  Transmission Date: 20141002
  Serious: Yes (Hospitalization, Other)
  Sender: FDA-Public Use
  Company Number: 163-21880-13074385

PATIENT
  Age: 66 Year
  Sex: Male

DRUGS (7)
  1. REVLIMID (LENALIDOMIDE) (25 MILLIGRAM, CAPSULES) [Suspect]
     Indication: PLASMA CELL MYELOMA
     Dosage: 25 MG, 21 IN 28 D, PO
     Route: 048
     Dates: start: 20130329, end: 201307
  2. COREG (CARVEDILOL) [Suspect]
  3. METFORMIN (METFORMIN) (UNKNOWN) [Concomitant]
  4. POTASSIUM (POTASSIUM) (UNKNOWN) [Concomitant]
  5. AMLODIPINE (AMLODIPINE) (UNKNOWN) [Concomitant]
  6. LISINOPRIL (LISINOPRIL) (TABLETS) [Concomitant]
  7. HYDRALAZINE (HYDRALAZINE) (UNKNOWN) [Concomitant]

REACTIONS (9)
  - Platelet count decreased [None]
  - White blood cell count decreased [None]
  - Red blood cell count decreased [None]
  - Headache [None]
  - Nausea [None]
  - Vomiting [None]
  - Diarrhoea [None]
  - Decreased appetite [None]
  - Fatigue [None]
